FAERS Safety Report 9408694 (Version 1)
Quarter: 2013Q3

REPORT INFORMATION
  Report Type: Report from Study
  Country: CA (occurrence: CA)
  Receive Date: 20130712
  Receipt Date: 20130712
  Transmission Date: 20140515
  Serious: Yes (Congenital Anomaly)
  Sender: FDA-Public Use
  Company Number: CA-PFIZER INC-2013201259

PATIENT
  Sex: 0

DRUGS (5)
  1. GABAPENTIN [Suspect]
     Indication: PAIN
     Dosage: 2400 MG/D
     Route: 064
  2. GABAPENTIN [Suspect]
     Indication: INTERVERTEBRAL DISC PROTRUSION
  3. TETRAZEPAM [Concomitant]
     Dosage: UNK
     Route: 064
  4. MORPHINE [Concomitant]
     Dosage: UNK
     Route: 064
  5. PARACETAMOL [Concomitant]
     Dosage: UNK
     Route: 064

REACTIONS (2)
  - Exposure during pregnancy [Unknown]
  - Pyloric stenosis [Unknown]
